FAERS Safety Report 8966306 (Version 2)
Quarter: 2013Q1

REPORT INFORMATION
  Report Type: Spontaneous
  Country: CZ (occurrence: CZ)
  Receive Date: 20121217
  Receipt Date: 20130322
  Transmission Date: 20140127
  Serious: Yes (Other)
  Sender: FDA-Public Use
  Company Number: PHHY2012CZ114544

PATIENT
  Sex: Female

DRUGS (3)
  1. GILENYA [Suspect]
     Indication: MULTIPLE SCLEROSIS
     Route: 048
     Dates: start: 20121115
  2. GILENYA [Suspect]
     Route: 048
  3. SOLU MEDROL [Suspect]
     Dosage: 500 MG, UNK
     Route: 042
     Dates: start: 20121128, end: 20121203

REACTIONS (7)
  - Peroneal nerve palsy [Unknown]
  - Muscular weakness [Unknown]
  - Gait disturbance [Unknown]
  - Optic neuritis [Recovered/Resolved]
  - Visual impairment [Unknown]
  - Pyrexia [Unknown]
  - Malaise [Unknown]
